FAERS Safety Report 7533517-1 (Version None)
Quarter: 2011Q2

REPORT INFORMATION
  Report Type: 
  Country: None (occurrence: None)
  Receive Date: 20110608
  Receipt Date: 20060123
  Transmission Date: 20111010
  Serious: Yes (Death, Hospitalization, Other)
  Sender: FDA-Public Use
  Company Number: PHMT2006CA00520

PATIENT
  Sex: Female

DRUGS (1)
  1. CLOZAPINE [Suspect]
     Dosage: UNK, UNK
     Dates: start: 19980401

REACTIONS (2)
  - DEATH [None]
  - LYMPHOMA [None]
